FAERS Safety Report 5658041-2 (Version None)
Quarter: 2008Q1

REPORT INFORMATION
  Report Type: 
  Country: None (occurrence: None)
  Receive Date: 20080310
  Receipt Date: 20061214
  Transmission Date: 20080703
  Serious: No
  Sender: FDA-Public Use
  Company Number: US-BAYER-200614980BCC

PATIENT
  Sex: Female
  Weight: 59 kg

DRUGS (4)
  1. ALEVE [Suspect]
     Indication: TOOTHACHE
     Dosage: TOTAL DAILY DOSE: 1320 MG  UNIT DOSE: 220 MG
     Route: 048
     Dates: start: 20061212
  2. ALEVE [Suspect]
     Dosage: TOTAL DAILY DOSE: 660 MG  UNIT DOSE: 220 MG
     Route: 048
     Dates: start: 20061213
  3. HYDROCODONE [Suspect]
     Indication: TOOTHACHE
     Route: 048
     Dates: start: 20061212
  4. TAPAZOL [Concomitant]

REACTIONS (1)
  - NAUSEA [None]
